FAERS Safety Report 10204495 (Version 1)
Quarter: 2014Q2

REPORT INFORMATION
  Report Type: Spontaneous
  Country: US (occurrence: US)
  Receive Date: 20140529
  Receipt Date: 20140529
  Transmission Date: 20141212
  Serious: No
  Sender: FDA-Public Use
  Company Number: US-SANOFI-AVENTIS-2013SA063461

PATIENT
  Sex: Female

DRUGS (3)
  1. LANTUS [Suspect]
     Indication: TYPE 2 DIABETES MELLITUS
     Dosage: THERAPY START DATE - 2 MONTHS AGO?DOSAGE - SLIDING SCALE?FREQUENCY - SOMETIMES TWICE A DAY
     Route: 051
  2. JANUVIA [Suspect]
     Dosage: AFTER SHE LEFT THE HOSPITAL THEY DECREASE HER JANUVIA AND GLPIZIDE
  3. GLIPIZIDE [Suspect]
     Dosage: AFTER SHE LEFT THE HOSPITAL THEY DECREASE HER JANUVIA AND GLPIZIDE

REACTIONS (4)
  - Weight increased [Unknown]
  - Blood glucose increased [Unknown]
  - Drug ineffective [Unknown]
  - Expired product administered [Unknown]
